FAERS Safety Report 7153535-5 (Version None)
Quarter: 2010Q4

REPORT INFORMATION
  Report Type: 
  Country: None (occurrence: None)
  Receive Date: 20101213
  Receipt Date: 20101201
  Transmission Date: 20110411
  Serious: Yes (Death)
  Sender: FDA-Public Use
  Company Number: GXKR2010HK13620

PATIENT
  Age: 52 Year
  Sex: Male

DRUGS (6)
  1. TACROLIMUS [Suspect]
     Indication: IMMUNOSUPPRESSION
     Dosage: 4 MG/DAY
  2. MYCOPHENOLATE MOFETIL [Concomitant]
     Indication: IMMUNOSUPPRESSION
     Dosage: 1250 MG/DAY
  3. PREDNISOLONE [Concomitant]
     Indication: IMMUNOSUPPRESSION
     Dosage: 7.5 MG/DAY
  4. CEFTRIAXONE [Concomitant]
  5. ACYCLOVIR SODIUM [Concomitant]
  6. HYDROCORTISONE [Concomitant]

REACTIONS (9)
  - BRAIN INJURY [None]
  - BRAIN OEDEMA [None]
  - COMA [None]
  - ENDOTRACHEAL INTUBATION [None]
  - LEUKOENCEPHALOPATHY [None]
  - LUMBAR PUNCTURE [None]
  - MECHANICAL VENTILATION [None]
  - MENTAL IMPAIRMENT [None]
  - PNEUMONIA [None]
